FAERS Safety Report 22079973 (Version 1)
Quarter: 2023Q1

REPORT INFORMATION
  Report Type: Spontaneous
  Country: US (occurrence: None)
  Receive Date: 20230308
  Receipt Date: 20230308
  Transmission Date: 20230418
  Serious: Yes (Hospitalization)
  Sender: FDA-Public Use
  Company Number: None

PATIENT
  Age: 22 Year
  Sex: Female

DRUGS (1)
  1. TYSABRI [Suspect]
     Active Substance: NATALIZUMAB
     Indication: Multiple sclerosis
     Dosage: FREQUENCY : MONTHLY;?
     Route: 042
     Dates: start: 20191114

REACTIONS (4)
  - Infusion related reaction [None]
  - Oropharyngeal pain [None]
  - Cough [None]
  - Throat tightness [None]

NARRATIVE: CASE EVENT DATE: 20230304
